FAERS Safety Report 7713680-X (Version None)
Quarter: 2011Q3

REPORT INFORMATION
  Report Type: 
  Country: None (occurrence: None)
  Receive Date: 20110826
  Receipt Date: 20110815
  Transmission Date: 20111222
  Serious: Yes (Other)
  Sender: FDA-Public Use
  Company Number: JP-MYLANLABS-2011S1017187

PATIENT
  Age: 50 Year
  Sex: Female

DRUGS (2)
  1. LOSARTAN [Concomitant]
     Dosage: 12.5MG
     Route: 065
  2. TACROLIMUS [Suspect]
     Indication: LUPUS NEPHRITIS
     Dosage: AFTER SUPPER
     Route: 048

REACTIONS (2)
  - SYSTEMIC LUPUS ERYTHEMATOSUS [None]
  - PULMONARY HAEMORRHAGE [None]
